FAERS Safety Report 18261836 (Version 1)
Quarter: 2020Q3

REPORT INFORMATION
  Report Type: Spontaneous
  Country: US (occurrence: US)
  Receive Date: 20200913
  Receipt Date: 20200913
  Transmission Date: 20201103
  Serious: Yes (Hospitalization)
  Sender: FDA-Public Use
  Company Number: None

PATIENT
  Age: 66 Year
  Sex: Male

DRUGS (1)
  1. AVONEX PEN [Suspect]
     Active Substance: INTERFERON BETA-1A
     Indication: MULTIPLE SCLEROSIS
     Dosage: OTHER DOSE:30MCG/0.5ML; ONCE WEEKLY INTRAMUSCULARLY?
     Route: 030
     Dates: start: 202001

REACTIONS (6)
  - Therapy interrupted [None]
  - Disease progression [None]
  - Blood sodium decreased [None]
  - Drug hypersensitivity [None]
  - Osteoarthritis [None]
  - Pneumonia [None]

NARRATIVE: CASE EVENT DATE: 202004
